FAERS Safety Report 7825116-9 (Version None)
Quarter: 2011Q4

REPORT INFORMATION
  Report Type: 
  Country: None (occurrence: None)
  Receive Date: 20111019
  Receipt Date: 20101110
  Transmission Date: 20120403
  Serious: No
  Sender: FDA-Public Use
  Company Number: US-BRISTOL-MYERS SQUIBB COMPANY-15377047

PATIENT
  Age: 75 Year
  Sex: Male

DRUGS (1)
  1. AVALIDE [Suspect]
     Dosage: STARTED 6 MONTHS AGO, DOSE DECREASED TO 150MG
     Dates: start: 20100101

REACTIONS (2)
  - PAIN [None]
  - DIZZINESS [None]
